FAERS Safety Report 16694135 (Version 2)
Quarter: 2019Q3

REPORT INFORMATION
  Report Type: Spontaneous
  Country: US (occurrence: US)
  Receive Date: 20190812
  Receipt Date: 20190820
  Transmission Date: 20191004
  Serious: No
  Sender: FDA-Public Use
  Company Number: US-BAYER-2019-149389

PATIENT
  Age: 21 Year
  Sex: Female

DRUGS (2)
  1. KYLEENA [Suspect]
     Active Substance: LEVONORGESTREL
     Indication: INTRAUTERINE CONTRACEPTION
     Dosage: 17.5 MCG/24HR, CONT
     Route: 015
     Dates: start: 20190115, end: 20190605
  2. SKYLA [Suspect]
     Active Substance: LEVONORGESTREL
     Indication: INTRAUTERINE CONTRACEPTION
     Dosage: 14 MCG/24HR, CONT
     Route: 015
     Dates: start: 201607, end: 20190115

REACTIONS (9)
  - Allergy to metals [Not Recovered/Not Resolved]
  - Alopecia universalis [Recovered/Resolved with Sequelae]
  - Bladder irritation [Not Recovered/Not Resolved]
  - Urinary tract infection [Recovered/Resolved with Sequelae]
  - Dysuria [Not Recovered/Not Resolved]
  - Anxiety [Recovered/Resolved with Sequelae]
  - Depression [Recovered/Resolved with Sequelae]
  - Cystitis interstitial [Not Recovered/Not Resolved]
  - Bacterial vaginosis [Recovered/Resolved with Sequelae]

NARRATIVE: CASE EVENT DATE: 2016
